FAERS Safety Report 25886324 (Version 1)
Quarter: 2025Q4

REPORT INFORMATION
  Report Type: Spontaneous
  Country: US (occurrence: US)
  Receive Date: 20251006
  Receipt Date: 20251006
  Transmission Date: 20260118
  Serious: No
  Sender: SANOFI AVENTIS
  Company Number: US-SA-2025SA294910

PATIENT
  Age: 66 Year
  Sex: Male
  Weight: 95.25 kg

DRUGS (4)
  1. DUPIXENT [Suspect]
     Active Substance: DUPILUMAB
     Indication: Eosinophilic oesophagitis
     Dosage: 300 MG, QW
     Route: 058
     Dates: start: 20250924
  2. CARAFATE [Concomitant]
     Active Substance: SUCRALFATE
  3. VOQUEZNA [Concomitant]
     Active Substance: VONOPRAZAN FUMARATE
  4. VITAMINS [Concomitant]
     Active Substance: VITAMINS
     Dosage: UNK, QD

REACTIONS (6)
  - Influenza like illness [Recovering/Resolving]
  - Productive cough [Recovering/Resolving]
  - Oropharyngeal pain [Recovering/Resolving]
  - Malaise [Recovering/Resolving]
  - Pain [Recovering/Resolving]
  - Injection site rash [Recovered/Resolved]

NARRATIVE: CASE EVENT DATE: 20250926
